FAERS Safety Report 7576452-5 (Version None)
Quarter: 2011Q2

REPORT INFORMATION
  Report Type: 
  Country: None (occurrence: None)
  Receive Date: 20110628
  Receipt Date: 20110624
  Transmission Date: 20111010
  Serious: Yes (Death, Hospitalization, Other)
  Sender: FDA-Public Use
  Company Number: US-AMGEN-USASP2011031128

PATIENT
  Age: 61 Year
  Sex: Male

DRUGS (10)
  1. LASIX [Concomitant]
     Dosage: 40 MG, QD
     Route: 048
  2. LAMIVUDINE [Concomitant]
     Dosage: 100 MG, QD
     Route: 048
  3. NPLATE [Suspect]
     Indication: IDIOPATHIC THROMBOCYTOPENIC PURPURA
     Dosage: 150 A?G, QWK
     Route: 058
     Dates: start: 20110511, end: 20110608
  4. DIAZEPAM [Concomitant]
     Dosage: 5 MG, BID
     Route: 048
  5. TRAZODONE HCL [Concomitant]
     Dosage: 150 MG, QD
  6. ASPIRIN [Concomitant]
     Dosage: 81 MG, QD
  7. AMIODARONE HCL [Concomitant]
     Dosage: 400 MG, QD
     Route: 048
  8. INSULIN [Concomitant]
     Dosage: 20 UNIT, QD
     Route: 058
  9. TRAMADOL HCL [Concomitant]
     Dosage: 50 MG, TID
  10. QUETIAPINE [Concomitant]
     Dosage: 100 MG, QD

REACTIONS (2)
  - SYNCOPE [None]
  - CORONARY ARTERY DISEASE [None]
